FAERS Safety Report 6866892-1 (Version None)
Quarter: 2010Q3

REPORT INFORMATION
  Report Type: 
  Country: None (occurrence: None)
  Receive Date: 20100721
  Receipt Date: 20100721
  Transmission Date: 20110219
  Serious: Yes (Other)
  Sender: FDA-Public Use
  Company Number: None

PATIENT
  Sex: Female
  Weight: 49.8957 kg

DRUGS (1)
  1. MOVIPREP [Suspect]
     Indication: COLONOSCOPY
     Dosage: (2)@1GT.  (1) 8OZ.@15MIN. ORALLY
     Route: 048
     Dates: start: 20100531

REACTIONS (7)
  - ANORECTAL DISORDER [None]
  - DIARRHOEA [None]
  - DISCOMFORT [None]
  - IRRITABILITY [None]
  - NAUSEA [None]
  - PAIN [None]
  - SWELLING [None]
